FAERS Safety Report 4986236-X (Version None)
Quarter: 2006Q2

REPORT INFORMATION
  Report Type: 
  Country: None (occurrence: None)
  Receive Date: 20060428
  Receipt Date: 20050901
  Transmission Date: 20061013
  Serious: Yes (Death, Disabling)
  Sender: FDA-Public Use
  Company Number: US-MERCK-0509USA00495

PATIENT
  Age: 66 Year
  Sex: Female
  Weight: 95 kg

DRUGS (9)
  1. VIOXX [Suspect]
     Indication: ARTHRALGIA
     Route: 048
     Dates: start: 20030717, end: 20040801
  2. CIPROFLOXACIN HCL [Concomitant]
     Route: 065
  3. NEURONTIN [Concomitant]
     Route: 065
  4. METOPROLOL [Concomitant]
     Route: 065
  5. DITROPAN [Concomitant]
     Route: 065
  6. ZANTAC [Concomitant]
     Route: 065
  7. GENTAK [Concomitant]
     Route: 065
  8. HYDROCHLOROTHIAZIDE [Concomitant]
     Route: 065
  9. MACROBID [Concomitant]
     Route: 065

REACTIONS (11)
  - ASTHMA [None]
  - CEREBROVASCULAR ACCIDENT [None]
  - CHOLELITHIASIS [None]
  - DYSURIA [None]
  - GASTRIC ATONY [None]
  - HAEMATURIA [None]
  - NEUTROPENIA [None]
  - OVARIAN CANCER [None]
  - PELVIC MASS [None]
  - PNEUMONIA ASPIRATION [None]
  - POLLAKIURIA [None]
